FAERS Safety Report 4321305-9 (Version None)
Quarter: 2004Q1

REPORT INFORMATION
  Report Type: 
  Country: None (occurrence: None)
  Receive Date: 20040322
  Receipt Date: 20030218
  Transmission Date: 20041129
  Serious: No
  Sender: FDA-Public Use
  Company Number: US-BRISTOL-MYERS SQUIBB COMPANY-12211074

PATIENT
  Age: 60 Year
  Sex: Female

DRUGS (1)
  1. VAGISTAT-1 [Suspect]
     Indication: VAGINAL MYCOSIS
     Dosage: THERAPY DATE: ^7 DAYS AGO^
     Route: 067
     Dates: start: 20030201, end: 20030201

REACTIONS (1)
  - DRUG INEFFECTIVE [None]
